FAERS Safety Report 20472377 (Version 1)
Quarter: 2022Q1

REPORT INFORMATION
  Report Type: Spontaneous
  Country: US (occurrence: US)
  Receive Date: 20220215
  Receipt Date: 20220215
  Transmission Date: 20220424
  Serious: Yes (Other)
  Sender: FDA-Public Use
  Company Number: US-SA-SAC20220208000525

PATIENT
  Sex: Female

DRUGS (12)
  1. KEVZARA [Suspect]
     Active Substance: SARILUMAB
     Indication: Rheumatoid arthritis
     Dosage: 200 MG, QOW, 200 MG/I. 14ML
     Route: 058
     Dates: start: 20211209
  2. KEVZARA [Suspect]
     Active Substance: SARILUMAB
     Dosage: 200MG
  3. ARAVA [Concomitant]
     Active Substance: LEFLUNOMIDE
  4. ARAVA [Concomitant]
     Active Substance: LEFLUNOMIDE
     Dosage: 20MG
  5. CALCIUM [Concomitant]
     Active Substance: CALCIUM
     Dosage: 600-400
  6. LIPITOR [Concomitant]
     Active Substance: ATORVASTATIN CALCIUM
  7. LYRICA [Concomitant]
     Active Substance: PREGABALIN
  8. MIRAPEX [Concomitant]
     Active Substance: PRAMIPEXOLE DIHYDROCHLORIDE
  9. MOBIC [Concomitant]
     Active Substance: MELOXICAM
  10. RINVOQ [Concomitant]
     Active Substance: UPADACITINIB
  11. VITAMIN C [Concomitant]
     Active Substance: ASCORBIC ACID
     Dosage: 500 MG
  12. CALCIUM WITH D3 [Concomitant]
     Dosage: TAB 600-400

REACTIONS (4)
  - Pain [Unknown]
  - Arthritis [Unknown]
  - Loss of personal independence in daily activities [Unknown]
  - Drug ineffective [Unknown]
